FAERS Safety Report 8129260-0 (Version None)
Quarter: 2012Q1

REPORT INFORMATION
  Report Type: 
  Country: None (occurrence: None)
  Receive Date: 20120210
  Receipt Date: 20111123
  Transmission Date: 20120608
  Serious: No
  Sender: FDA-Public Use
  Company Number: US-BRISTOL-MYERS SQUIBB COMPANY-16245854

PATIENT
  Sex: Male

DRUGS (1)
  1. ORENCIA [Suspect]
     Dosage: LAST INFUSION ON 22NOV2011
     Route: 042
     Dates: start: 20110401

REACTIONS (1)
  - DRUG INEFFECTIVE [None]
